FAERS Safety Report 5339302-3 (Version None)
Quarter: 2007Q2

REPORT INFORMATION
  Report Type: 
  Country: None (occurrence: None)
  Receive Date: 20070530
  Receipt Date: 20070524
  Transmission Date: 20071010
  Serious: Yes (Life-Threatening, Hospitalization, Other)
  Sender: FDA-Public Use
  Company Number: US-MERCK-0705USA04993

PATIENT
  Age: 77 Year
  Sex: Female

DRUGS (2)
  1. JANUMET [Suspect]
     Indication: BLOOD GLUCOSE
     Route: 048
     Dates: start: 20070101, end: 20070501
  2. JANUVIA [Concomitant]
     Route: 048

REACTIONS (2)
  - DEHYDRATION [None]
  - MYOCARDIAL INFARCTION [None]
